FAERS Safety Report 25347129 (Version 1)
Quarter: 2025Q2

REPORT INFORMATION
  Report Type: Spontaneous
  Country: US (occurrence: US)
  Receive Date: 20250522
  Receipt Date: 20250522
  Transmission Date: 20250717
  Serious: Yes (Other)
  Sender: PFIZER
  Company Number: US-PFIZER INC-PV202500061207

PATIENT
  Sex: Male

DRUGS (1)
  1. VYNDAMAX [Suspect]
     Active Substance: TAFAMIDIS

REACTIONS (11)
  - Syncope [Unknown]
  - Atrial fibrillation [Not Recovered/Not Resolved]
  - Weight increased [Unknown]
  - Blood pressure abnormal [Unknown]
  - Dyspnoea [Unknown]
  - Peripheral swelling [Unknown]
  - Abdominal distension [Unknown]
  - Chest pain [Unknown]
  - Palpitations [Unknown]
  - Fatigue [Unknown]
  - Neurological symptom [Unknown]
